FAERS Safety Report 8473864-2 (Version None)
Quarter: 2012Q2

REPORT INFORMATION
  Report Type: 
  Country: None (occurrence: None)
  Receive Date: 20120628
  Receipt Date: 20120113
  Transmission Date: 20120825
  Serious: Yes (Death)
  Sender: FDA-Public Use
  Company Number: US-MYLANLABS-2012S1000126

PATIENT
  Sex: Female

DRUGS (8)
  1. GEODON [Concomitant]
  2. SIMVASTATIN [Concomitant]
  3. CLOZAPINE [Suspect]
     Indication: SCHIZOAFFECTIVE DISORDER
     Route: 048
     Dates: start: 20090101
  4. AMBIEN [Concomitant]
     Indication: SLEEP DISORDER
  5. ATENOLOL [Concomitant]
  6. CLOZAPINE [Suspect]
     Route: 048
     Dates: start: 20090101
  7. VITAMIN D [Concomitant]
  8. ASPIRIN [Concomitant]

REACTIONS (2)
  - LUNG NEOPLASM MALIGNANT [None]
  - CARDIAC DISORDER [None]
